FAERS Safety Report 8505737-0 (Version None)
Quarter: 2012Q3

REPORT INFORMATION
  Report Type: 
  Country: None (occurrence: None)
  Receive Date: 20120706
  Receipt Date: 20120706
  Transmission Date: 20120928
  Serious: Yes (Death)
  Sender: FDA-Public Use
  Company Number: None

PATIENT
  Sex: Female
  Weight: 49.4421 kg

DRUGS (1)
  1. ONDANSETRON [Suspect]
     Indication: VOMITING
     Dosage: 4 MG IV BOLUS
     Route: 040
     Dates: start: 20120623, end: 20120623

REACTIONS (7)
  - BLOOD PRESSURE IMMEASURABLE [None]
  - OXYGEN SATURATION DECREASED [None]
  - VENTRICULAR TACHYCARDIA [None]
  - SPUTUM DISCOLOURED [None]
  - BRADYCARDIA [None]
  - ATRIAL FIBRILLATION [None]
  - UNRESPONSIVE TO STIMULI [None]
